FAERS Safety Report 4305187-7 (Version None)
Quarter: 2004Q1

REPORT INFORMATION
  Report Type: 
  Country: None (occurrence: None)
  Receive Date: 20040225
  Receipt Date: 20040225
  Transmission Date: 20041129
  Serious: Yes (Hospitalization)
  Sender: FDA-Public Use
  Company Number: None

PATIENT
  Age: 52 Year
  Sex: Male
  Weight: 97.5234 kg

DRUGS (2)
  1. SILDENAFIL VS [Suspect]
     Indication: CARDIAC FAILURE CONGESTIVE
     Dosage: 75 MG TID
     Dates: start: 20040114
  2. PLACEBO [Suspect]

REACTIONS (3)
  - ATRIAL FLUTTER [None]
  - CARDIAC FAILURE [None]
  - CONDITION AGGRAVATED [None]
